FAERS Safety Report 9028868 (Version 1)
Quarter: 2013Q1

REPORT INFORMATION
  Report Type: Spontaneous
  Country: FR (occurrence: FR)
  Receive Date: 20130124
  Receipt Date: 20130124
  Transmission Date: 20140127
  Serious: No
  Sender: FDA-Public Use
  Company Number: FR-JNJFOC-20130108303

PATIENT
  Age: 83 Year
  Sex: Female

DRUGS (1)
  1. DUROGESIC [Suspect]
     Indication: PRODUCT USED FOR UNKNOWN INDICATION
     Dosage: 75MG 12MG IN THE MORNING, AND 75MG  12MG IN THE EVENING, 4 PATCHES STICKED DEFERRED, EVERY 3 DAYS
     Route: 062

REACTIONS (2)
  - Drug prescribing error [Unknown]
  - Off label use [Unknown]
